FAERS Safety Report 10591296 (Version 1)
Quarter: 2014Q4

REPORT INFORMATION
  Report Type: Spontaneous
  Country: DE (occurrence: DE)
  Receive Date: 20141118
  Receipt Date: 20141118
  Transmission Date: 20150529
  Serious: Yes (Congenital Anomaly, Other)
  Sender: FDA-Public Use
  Company Number: DE-PFIZER INC-2014309739

PATIENT
  Sex: Male
  Weight: 2.4 kg

DRUGS (3)
  1. ZELDOX [Suspect]
     Active Substance: ZIPRASIDONE
     Indication: RESTLESSNESS
     Dosage: 20 MG, 1X/DAY
     Route: 064
  2. AMOXICILLIN. [Concomitant]
     Active Substance: AMOXICILLIN
     Indication: ACUTE TONSILLITIS
     Dosage: 1000 MG, 3X/DAY
     Route: 064
  3. ZOELY [Concomitant]
     Active Substance: ESTRADIOL\NOMEGESTROL ACETATE
     Indication: CONTRACEPTION
     Dosage: 1.5 MG/D / 2.5 MG/D
     Route: 064

REACTIONS (5)
  - Cryptorchism [Unknown]
  - Maternal exposure during pregnancy [Unknown]
  - Polydactyly [Unknown]
  - Hyperbilirubinaemia neonatal [Recovered/Resolved]
  - Premature baby [Recovering/Resolving]

NARRATIVE: CASE EVENT DATE: 20140720
